FAERS Safety Report 8364656-3 (Version None)
Quarter: 2012Q2

REPORT INFORMATION
  Report Type: 
  Country: None (occurrence: None)
  Receive Date: 20120516
  Receipt Date: 20120509
  Transmission Date: 20120825
  Serious: Yes (Hospitalization)
  Sender: FDA-Public Use
  Company Number: US-AMGEN-USASP2012029252

PATIENT
  Age: 49 Year
  Sex: Female

DRUGS (1)
  1. ENBREL [Suspect]
     Indication: RHEUMATOID ARTHRITIS
     Dosage: 25 MG, 2 TIMES/WK
     Dates: start: 20120301

REACTIONS (7)
  - HOSPITALISATION [None]
  - GASTROINTESTINAL TRACT MUCOSAL DISCOLOURATION [None]
  - PNEUMONIA [None]
  - NERVOUS SYSTEM DISORDER [None]
  - DISORIENTATION [None]
  - DIARRHOEA [None]
  - DEHYDRATION [None]
